FAERS Safety Report 8241749-2 (Version None)
Quarter: 2012Q1

REPORT INFORMATION
  Report Type: 
  Country: None (occurrence: None)
  Receive Date: 20120328
  Receipt Date: 20120314
  Transmission Date: 20120608
  Serious: Yes (Other)
  Sender: FDA-Public Use
  Company Number: US-ROCHE-1049838

PATIENT
  Sex: Male

DRUGS (7)
  1. CYCLOPHOSPHAMIDE [Concomitant]
     Indication: B-CELL LYMPHOMA STAGE IV
  2. RITUXAN [Suspect]
     Indication: DIFFUSE LARGE B-CELL LYMPHOMA STAGE IV
     Route: 042
     Dates: start: 20120302
  3. VINCRISTINE [Concomitant]
     Indication: B-CELL LYMPHOMA STAGE IV
  4. DOXORUBICIN HCL [Concomitant]
     Indication: B-CELL LYMPHOMA STAGE IV
  5. PREDNISONE TAB [Concomitant]
     Indication: B-CELL LYMPHOMA STAGE IV
  6. ATENOLOL [Concomitant]
  7. PRILOSEC [Concomitant]

REACTIONS (2)
  - POSTERIOR REVERSIBLE ENCEPHALOPATHY SYNDROME [None]
  - VISUAL IMPAIRMENT [None]
